FAERS Safety Report 9330901 (Version 1)
Quarter: 2013Q2

REPORT INFORMATION
  Report Type: Spontaneous
  Country: CA (occurrence: None)
  Receive Date: 20130531
  Receipt Date: 20130531
  Transmission Date: 20140414
  Serious: Yes (Other)
  Sender: FDA-Public Use
  Company Number: CA-ALSI-201300126

PATIENT
  Age: 74 Year
  Sex: Female

DRUGS (10)
  1. NITROUS OXIDE [Suspect]
  2. OXYGEN [Suspect]
  3. ISOFLURANE [Suspect]
  4. SUBLIMAZE [Suspect]
  5. ADALAT (NIFEDIPINE) [Concomitant]
  6. GRAVOL (DIMENHYDRINATE) [Concomitant]
  7. IBUPROFEN [Concomitant]
  8. METHYLDOPA [Concomitant]
  9. OXAZEPAM [Concomitant]
  10. TYLENOL WITH CODEINE (PARACETAMOL; CODEINE [Concomitant]

REACTIONS (3)
  - Anaphylactoid reaction [None]
  - Bradycardia [None]
  - Hypotension [None]
